FAERS Safety Report 16870259 (Version 1)
Quarter: 2019Q3

REPORT INFORMATION
  Report Type: Spontaneous
  Country: CN (occurrence: CN)
  Receive Date: 20190930
  Receipt Date: 20190930
  Transmission Date: 20191005
  Serious: Yes (Disabling, Other)
  Sender: FDA-Public Use
  Company Number: CN-PFIZER INC-2019415169

PATIENT
  Age: 76 Year
  Sex: Male
  Weight: 76 kg

DRUGS (1)
  1. LIPITOR [Suspect]
     Active Substance: ATORVASTATIN CALCIUM
     Indication: CEREBRAL INFARCTION
     Dosage: 40 MG, 1X/DAY
     Route: 048
     Dates: start: 20190807, end: 20190818

REACTIONS (6)
  - Peripheral arterial occlusive disease [Unknown]
  - Peripheral swelling [Unknown]
  - Foot deformity [Unknown]
  - Myalgia [Recovering/Resolving]
  - Pain in extremity [Unknown]
  - Insomnia [Unknown]

NARRATIVE: CASE EVENT DATE: 20190816
